FAERS Safety Report 10876418 (Version 1)
Quarter: 2015Q1

REPORT INFORMATION
  Report Type: Spontaneous
  Country: CH (occurrence: CH)
  Receive Date: 20150228
  Receipt Date: 20150228
  Transmission Date: 20150721
  Serious: Yes (Hospitalization)
  Sender: FDA-Public Use
  Company Number: PHHY2015CH023239

PATIENT
  Age: 44 Year
  Sex: Female

DRUGS (8)
  1. FLUCTINE [Concomitant]
     Active Substance: FLUOXETINE HYDROCHLORIDE
     Indication: PRODUCT USED FOR UNKNOWN INDICATION
     Route: 048
     Dates: start: 20141113
  2. BETMIGA [Concomitant]
     Active Substance: MIRABEGRON
     Indication: PRODUCT USED FOR UNKNOWN INDICATION
     Route: 065
  3. TEBOKAN [Concomitant]
     Indication: PRODUCT USED FOR UNKNOWN INDICATION
     Route: 048
     Dates: start: 201409
  4. REMERON [Concomitant]
     Active Substance: MIRTAZAPINE
     Indication: PAIN
     Route: 048
  5. AUGMENTIN [Concomitant]
     Active Substance: AMOXICILLIN\CLAVULANATE POTASSIUM
     Indication: PRODUCT USED FOR UNKNOWN INDICATION
     Route: 065
  6. GILENYA [Suspect]
     Active Substance: FINGOLIMOD HYDROCHLORIDE
     Indication: MULTIPLE SCLEROSIS
     Route: 048
     Dates: start: 201406, end: 20141120
  7. AMOXI ^MEPHA^ [Concomitant]
     Indication: PRODUCT USED FOR UNKNOWN INDICATION
     Route: 048
     Dates: start: 20141124, end: 20141127
  8. VOLTAREN [Concomitant]
     Active Substance: DICLOFENAC SODIUM
     Indication: PRODUCT USED FOR UNKNOWN INDICATION
     Dosage: 1 OT, 5QD (31 DROP) (5X1 DROPS IN RIGHT EYE )
     Route: 065
     Dates: start: 201411

REACTIONS (6)
  - Tinnitus [Unknown]
  - Chest pain [Recovered/Resolved]
  - Neck pain [Recovered/Resolved]
  - Episcleritis [Unknown]
  - Erythema [Unknown]
  - Oral herpes [Unknown]

NARRATIVE: CASE EVENT DATE: 201411
